FAERS Safety Report 6986524-1 (Version None)
Quarter: 2010Q3

REPORT INFORMATION
  Report Type: 
  Country: None (occurrence: None)
  Receive Date: 20100827
  Receipt Date: 20091209
  Transmission Date: 20110219
  Serious: Yes (Other)
  Sender: FDA-Public Use
  Company Number: AMAG200900071

PATIENT
  Age: 57 Year
  Sex: Female
  Weight: 89 kg

DRUGS (20)
  1. FERAHEME [Suspect]
     Indication: IRON DEFICIENCY ANAEMIA
     Dosage: 3 ML (90 MG), SINGLE, INTRAVENOUS
     Route: 042
     Dates: start: 20091208, end: 20091208
  2. BENADRYL [Concomitant]
  3. REMICADE [Concomitant]
  4. BENZONATATE [Concomitant]
  5. TRAZODONE HCL [Concomitant]
  6. AZATHIOPRINE MERCK (AZATHIOPRINE) [Concomitant]
  7. OMEPRAZOLE [Concomitant]
  8. CARBIDOPA (CARBIDOPA) [Concomitant]
  9. LEVODOPA (LEVODOPA) [Concomitant]
  10. BACLOFEN [Concomitant]
  11. GABAPENTIN [Concomitant]
  12. MIRAPEX [Concomitant]
  13. HYDROXYZINE [Concomitant]
  14. BUPROPION HCL [Concomitant]
  15. DIAZIDE (GLICLAZIDE) [Concomitant]
  16. METHOCARBAMOL [Concomitant]
  17. CYMBALTA [Concomitant]
  18. MARIJUANA (CANNABIS SATIVA) [Concomitant]
  19. VICODIN [Concomitant]
  20. INHALER [Concomitant]

REACTIONS (3)
  - ANAPHYLACTIC REACTION [None]
  - HYPERTENSION [None]
  - INFUSION SITE PAIN [None]
